FAERS Safety Report 17090362 (Version 2)
Quarter: 2020Q2

REPORT INFORMATION
  Report Type: Spontaneous
  Country: US (occurrence: US)
  Receive Date: 20191129
  Receipt Date: 20200526
  Transmission Date: 20200713
  Serious: No
  Sender: FDA-Public Use
  Company Number: US-UCBSA-2018026460

PATIENT
  Sex: Female

DRUGS (1)
  1. CIMZIA [Suspect]
     Active Substance: CERTOLIZUMAB PEGOL
     Indication: RHEUMATOID ARTHRITIS
     Dosage: UNK (1 TO 2 MONTHS)
     Dates: start: 2018

REACTIONS (11)
  - Peripheral swelling [Unknown]
  - Fibromyalgia [Unknown]
  - Pain in extremity [Unknown]
  - Erythema [Unknown]
  - Decreased interest [Unknown]
  - Rash [Unknown]
  - Rheumatoid arthritis [Unknown]
  - Osteoarthritis [Unknown]
  - Stress [Unknown]
  - Feeling of despair [Unknown]
  - Depression [Unknown]

NARRATIVE: CASE EVENT DATE: 2018
